FAERS Safety Report 6596080-8 (Version None)
Quarter: 2010Q1

REPORT INFORMATION
  Report Type: 
  Country: None (occurrence: None)
  Receive Date: 20100204
  Receipt Date: 20091214
  Transmission Date: 20100710
  Serious: No
  Sender: FDA-Public Use
  Company Number: 2009-10703

PATIENT
  Age: 81 Year
  Sex: Female

DRUGS (1)
  1. RAPAFLO [Suspect]
     Indication: POLLAKIURIA
     Dosage: 1 CAPSULE, DAILY, ORAL
     Route: 048
     Dates: start: 20091209

REACTIONS (4)
  - DRY EYE [None]
  - EYE IRRITATION [None]
  - OCULAR DISCOMFORT [None]
  - OFF LABEL USE [None]
